FAERS Safety Report 8401475-3 (Version None)
Quarter: 2012Q2

REPORT INFORMATION
  Report Type: 
  Country: None (occurrence: None)
  Receive Date: 20120601
  Receipt Date: 20120530
  Transmission Date: 20120825
  Serious: Yes (Death, Other)
  Sender: FDA-Public Use
  Company Number: PHHY2010CA69390

PATIENT
  Sex: Female

DRUGS (3)
  1. LASIX [Concomitant]
  2. SANDOSTATIN LAR [Suspect]
     Dosage: 20 MG, QMO
     Route: 030
     Dates: end: 20120430
  3. SANDOSTATIN LAR [Suspect]
     Indication: GASTROINTESTINAL ANGIODYSPLASIA
     Dosage: 20 MG, QMO
     Route: 030
     Dates: start: 20090101

REACTIONS (13)
  - COUGH [None]
  - INFLUENZA [None]
  - MYALGIA [None]
  - FATIGUE [None]
  - ANGINA PECTORIS [None]
  - BLOOD PRESSURE DECREASED [None]
  - DIARRHOEA [None]
  - DEATH [None]
  - RENAL FAILURE [None]
  - INSOMNIA [None]
  - SLEEP DISORDER [None]
  - URINE OUTPUT DECREASED [None]
  - CHILLS [None]
